FAERS Safety Report 8027453-4 (Version None)
Quarter: 2012Q1

REPORT INFORMATION
  Report Type: 
  Country: None (occurrence: None)
  Receive Date: 20120106
  Receipt Date: 20111226
  Transmission Date: 20120608
  Serious: Yes (Hospitalization)
  Sender: FDA-Public Use
  Company Number: FR-SANOFI-AVENTIS-2011SA084562

PATIENT
  Age: 10 Year
  Sex: Female

DRUGS (3)
  1. VANCOMYCIN [Suspect]
     Indication: LUNG ABSCESS
     Route: 042
     Dates: start: 20110707, end: 20110723
  2. CLAFORAN [Suspect]
     Indication: LUNG ABSCESS
     Dosage: 1 G EVERY 8 HOURS
     Route: 042
     Dates: start: 20110707, end: 20110723
  3. FLAGYL [Suspect]
     Indication: LUNG ABSCESS
     Dosage: 300 MG EVERY 8 HOURS
     Route: 042
     Dates: start: 20110707, end: 20110723

REACTIONS (5)
  - LYMPHOPENIA [None]
  - URTICARIA [None]
  - MIXED LIVER INJURY [None]
  - AGRANULOCYTOSIS [None]
  - ANAEMIA [None]
